FAERS Safety Report 12905525 (Version 2)
Quarter: 2017Q1

REPORT INFORMATION
  Report Type: Report from Study
  Country: US (occurrence: US)
  Receive Date: 20161103
  Receipt Date: 20170330
  Transmission Date: 20170428
  Serious: No
  Sender: FDA-Public Use
  Company Number: PHEH2016US028509

PATIENT
  Sex: Male

DRUGS (1)
  1. GILENYA [Suspect]
     Active Substance: FINGOLIMOD HYDROCHLORIDE
     Indication: MULTIPLE SCLEROSIS
     Dosage: 0.5 MG, QD
     Route: 048
     Dates: start: 20141007

REACTIONS (7)
  - Lymphopenia [Unknown]
  - Malaise [Unknown]
  - Upper respiratory tract infection [Unknown]
  - Ear disorder [Unknown]
  - Sinus disorder [Unknown]
  - Nasal congestion [Unknown]
  - Fatigue [Unknown]
